FAERS Safety Report 15783957 (Version 1)
Quarter: 2019Q1

REPORT INFORMATION
  Report Type: Spontaneous
  Country: US (occurrence: US)
  Receive Date: 20190102
  Receipt Date: 20190102
  Transmission Date: 20190417
  Serious: Yes (Other)
  Sender: FDA-Public Use
  Company Number: US-AMGEN-USASP2018186922

PATIENT
  Age: 27 Year
  Sex: Female
  Weight: 58.5 kg

DRUGS (3)
  1. PROCRIT [Suspect]
     Active Substance: ERYTHROPOIETIN
     Dosage: 10000 UNIT, Q2WK
     Route: 065
     Dates: start: 201809, end: 2018
  2. PROCRIT [Suspect]
     Active Substance: ERYTHROPOIETIN
     Indication: NEPHROGENIC ANAEMIA
     Dosage: 10000 UNIT, QWK
     Route: 065
     Dates: start: 201809, end: 2018
  3. PROCRIT [Suspect]
     Active Substance: ERYTHROPOIETIN
     Dosage: 10000 UNIT, Q2WK
     Route: 065
     Dates: start: 201811

REACTIONS (2)
  - Anaemia [Unknown]
  - Musculoskeletal pain [Unknown]

NARRATIVE: CASE EVENT DATE: 2018
